FAERS Safety Report 23560871 (Version 2)
Quarter: 2024Q1

REPORT INFORMATION
  Report Type: Report from Study
  Country: US (occurrence: US)
  Receive Date: 20240223
  Receipt Date: 20240229
  Transmission Date: 20240409
  Serious: Yes (Hospitalization, Other)
  Sender: FDA-Public Use
  Company Number: US-AMX-007571

PATIENT
  Age: 50 Year
  Sex: Male

DRUGS (3)
  1. RELYVRIO [Suspect]
     Active Substance: SODIUM PHENYLBUTYRATE\TAURURSODIOL
     Indication: Amyotrophic lateral sclerosis
     Dosage: 1 SACHET ONCE DAILY FOR FIRST 3 WEEKS THEN ONE SACHET TWICE DAILY
     Route: 048
     Dates: start: 202302
  2. RELYVRIO [Suspect]
     Active Substance: SODIUM PHENYLBUTYRATE\TAURURSODIOL
     Indication: Amyotrophic lateral sclerosis
     Dosage: ONE SACHET TWICE DAILY
     Route: 048
     Dates: start: 202303
  3. RADICAVA ORS [Concomitant]
     Active Substance: EDARAVONE
     Indication: Product used for unknown indication
     Dosage: DAILY FOR 10 DAYS IN A 14-DAY PERIOD THEN 14 DAYS OFF
     Route: 065
     Dates: start: 202212

REACTIONS (4)
  - Choking [Unknown]
  - Cough [Unknown]
  - Hypertension [Unknown]
  - Peripheral swelling [Unknown]
